FAERS Safety Report 9698699 (Version 1)
Quarter: 2013Q4

REPORT INFORMATION
  Report Type: Report from Study
  Country: US (occurrence: US)
  Receive Date: 20131120
  Receipt Date: 20131120
  Transmission Date: 20140711
  Serious: Yes (Hospitalization)
  Sender: FDA-Public Use
  Company Number: US-ABBVIE-13P-163-1169550-00

PATIENT
  Age: 39 Year
  Sex: Male
  Weight: 77.18 kg

DRUGS (5)
  1. MARINOL [Suspect]
     Indication: SPONDYLOLISTHESIS
     Dates: start: 2008, end: 201203
  2. OXYCONTIN [Concomitant]
     Indication: BACK PAIN
  3. SOMA [Concomitant]
     Indication: MUSCLE RELAXANT THERAPY
  4. VALIUM [Concomitant]
     Indication: MUSCLE RELAXANT THERAPY
  5. VICODIN [Concomitant]
     Indication: BACK PAIN

REACTIONS (3)
  - Back pain [Recovered/Resolved]
  - Road traffic accident [Recovered/Resolved]
  - Back pain [Not Recovered/Not Resolved]
